FAERS Safety Report 7495422 (Version 2)
Quarter: 2013Q2

REPORT INFORMATION
  Report Type: Spontaneous
  Country: US (occurrence: US)
  Receive Date: 20100722
  Receipt Date: 20130408
  Transmission Date: 20140414
  Serious: Yes (Other)
  Sender: FDA-Public Use
  Company Number: US-BAYER-201027931NA

PATIENT
  Sex: Female

DRUGS (3)
  1. CIPRO [Suspect]
     Indication: INFECTION
     Route: 048
  2. CIPRO [Suspect]
     Indication: COLON OPERATION
     Route: 042
  3. CIPRO [Suspect]
     Indication: DIVERTICULITIS

REACTIONS (5)
  - Hypersensitivity [Unknown]
  - Nervous system disorder [None]
  - Musculoskeletal disorder [None]
  - Gastrointestinal disorder [None]
  - Neuralgia [None]
